FAERS Safety Report 4530638-2 (Version None)
Quarter: 2004Q4

REPORT INFORMATION
  Report Type: 
  Country: None (occurrence: None)
  Receive Date: 20041216
  Receipt Date: 20041126
  Transmission Date: 20050328
  Serious: Yes (Hospitalization, Disabling)
  Sender: FDA-Public Use
  Company Number: FR_041105329

PATIENT
  Age: 6 Year
  Sex: Female
  Weight: 18 kg

DRUGS (1)
  1. HUMATROPE [Suspect]
     Indication: GROWTH HORMONE DEFICIENCY
     Dosage: 0.935 MG OTHER
     Route: 050
     Dates: start: 20030422, end: 20041120

REACTIONS (2)
  - DIABETES MELLITUS INSULIN-DEPENDENT [None]
  - GLYCOSYLATED HAEMOGLOBIN INCREASED [None]
